FAERS Safety Report 7663972-8 (Version None)
Quarter: 2011Q3

REPORT INFORMATION
  Report Type: 
  Country: None (occurrence: None)
  Receive Date: 20110805
  Receipt Date: 20100823
  Transmission Date: 20111222
  Serious: No
  Sender: FDA-Public Use
  Company Number: US-ABBOTT-10P-163-0665461-00

PATIENT
  Sex: Male
  Weight: 92.616 kg

DRUGS (1)
  1. NIASPAN [Suspect]
     Indication: MYOCARDIAL INFARCTION
     Dosage: AT NIGHT
     Dates: start: 20080101, end: 20080101

REACTIONS (5)
  - DIARRHOEA [None]
  - HYPERHIDROSIS [None]
  - CHILLS [None]
  - DIZZINESS [None]
  - TREMOR [None]
